FAERS Safety Report 8039904-X (Version None)
Quarter: 2012Q1

REPORT INFORMATION
  Report Type: 
  Country: None (occurrence: None)
  Receive Date: 20120111
  Receipt Date: 20111219
  Transmission Date: 20120608
  Serious: No
  Sender: FDA-Public Use
  Company Number: US-AMGEN-USASP2011067979

PATIENT
  Age: 59 Year
  Sex: Female

DRUGS (2)
  1. ENBREL [Suspect]
     Indication: RHEUMATOID ARTHRITIS
     Dosage: 50 MG, QWK
     Dates: start: 20111121
  2. TREXALL [Concomitant]
     Dosage: 8 PILLS WEEKLY
     Dates: start: 20090101

REACTIONS (3)
  - INJECTION SITE PAIN [None]
  - INJECTION SITE DISCHARGE [None]
  - INJECTION SITE HAEMATOMA [None]
